FAERS Safety Report 10492115 (Version 1)
Quarter: 2014Q4

REPORT INFORMATION
  Report Type: Spontaneous
  Country: US (occurrence: US)
  Receive Date: 20141002
  Receipt Date: 20141002
  Transmission Date: 20150528
  Serious: No
  Sender: FDA-Public Use
  Company Number: US-GLAXOSMITHKLINE-A1065591A

PATIENT
  Sex: Male

DRUGS (5)
  1. PROTONIX [Concomitant]
     Active Substance: PANTOPRAZOLE SODIUM
  2. LOSARTAN [Concomitant]
     Active Substance: LOSARTAN
  3. VITAMIN [Concomitant]
     Active Substance: VITAMINS
  4. ATENOLOL. [Concomitant]
     Active Substance: ATENOLOL
  5. ADVAIR HFA [Suspect]
     Active Substance: FLUTICASONE PROPIONATE\SALMETEROL XINAFOATE
     Indication: DYSPNOEA
     Dosage: 1PUFF TWICE PER DAY
     Route: 055

REACTIONS (2)
  - Dyspnoea [Unknown]
  - Product quality issue [Unknown]
